FAERS Safety Report 14801986 (Version 1)
Quarter: 2018Q2

REPORT INFORMATION
  Report Type: Spontaneous
  Country: US (occurrence: US)
  Receive Date: 20180424
  Receipt Date: 20180424
  Transmission Date: 20180711
  Serious: Yes (Other)
  Sender: FDA-Public Use
  Company Number: US-NAPPMUNDI-USA-2017-0141910

PATIENT

DRUGS (1)
  1. OXYCODONE HYDROCHLORIDE (SIMILAR TO NDA 22-272) [Suspect]
     Active Substance: OXYCODONE HYDROCHLORIDE
     Indication: PAIN MANAGEMENT
     Dosage: 60-90 MG EVERY 4-6 HRS.
     Route: 048

REACTIONS (4)
  - Suicide attempt [Recovered/Resolved]
  - Drug abuser [Unknown]
  - Pain [Unknown]
  - Drug tolerance [Unknown]
